FAERS Safety Report 9981462 (Version 1)
Quarter: 2014Q1

REPORT INFORMATION
  Report Type: Spontaneous
  Country: US (occurrence: None)
  Receive Date: 20140306
  Receipt Date: 20140306
  Transmission Date: 20141002
  Serious: No
  Sender: FDA-Public Use
  Company Number: None

PATIENT
  Age: 32 Year
  Sex: Male
  Weight: 99.79 kg

DRUGS (1)
  1. AMPHETAMINE SALTS [Suspect]

REACTIONS (3)
  - Product quality issue [None]
  - Drug ineffective [None]
  - Economic problem [None]
